FAERS Safety Report 25493460 (Version 1)
Quarter: 2025Q2

REPORT INFORMATION
  Report Type: Spontaneous
  Country: US (occurrence: US)
  Receive Date: 20250630
  Receipt Date: 20250630
  Transmission Date: 20250717
  Serious: No
  Sender: ROCHE
  Company Number: US-ROCHE-10000316387

PATIENT
  Age: 34 Year
  Sex: Male

DRUGS (6)
  1. COBIMETINIB [Suspect]
     Active Substance: COBIMETINIB
     Indication: Rosai-Dorfman syndrome
     Route: 065
  2. COBIMETINIB [Suspect]
     Active Substance: COBIMETINIB
     Indication: Ill-defined disorder
  3. RIFABUTIN [Concomitant]
     Active Substance: RIFABUTIN
  4. ISONIAZID [Concomitant]
     Active Substance: ISONIAZID
  5. PYRAZINAMIDE [Concomitant]
     Active Substance: PYRAZINAMIDE
  6. ETHAMBUTOL [Concomitant]
     Active Substance: ETHAMBUTOL HYDROCHLORIDE

REACTIONS (3)
  - Pruritus [Recovered/Resolved]
  - Skin irritation [Recovered/Resolved]
  - Intentional product misuse [Unknown]
